FAERS Safety Report 13176599 (Version 1)
Quarter: 2017Q1

REPORT INFORMATION
  Report Type: Report from Study
  Country: US (occurrence: US)
  Receive Date: 20170201
  Receipt Date: 20170201
  Transmission Date: 20170428
  Serious: Yes (Other)
  Sender: FDA-Public Use
  Company Number: US-GILEAD-2017-0255956

PATIENT
  Age: 59 Year
  Sex: Female

DRUGS (1)
  1. IDELALISIB [Suspect]
     Active Substance: IDELALISIB
     Indication: B-CELL LYMPHOMA
     Dosage: 100 MG, BID
     Route: 048

REACTIONS (12)
  - Vision blurred [Unknown]
  - Acute kidney injury [Unknown]
  - Dehydration [Unknown]
  - Salivary gland enlargement [Unknown]
  - Salivary gland pain [Unknown]
  - Skin exfoliation [Unknown]
  - Hypothyroidism [Unknown]
  - Disturbance in attention [Unknown]
  - Pelvic pain [Unknown]
  - Peripheral swelling [Unknown]
  - Hypoaesthesia [Unknown]
  - Upper-airway cough syndrome [Unknown]
